FAERS Safety Report 7612220-3 (Version None)
Quarter: 2011Q3

REPORT INFORMATION
  Report Type: 
  Country: None (occurrence: None)
  Receive Date: 20110715
  Receipt Date: 20110629
  Transmission Date: 20111222
  Serious: Yes (Disabling, Other)
  Sender: FDA-Public Use
  Company Number: CA-ASTRAZENECA-2011SE09310

PATIENT
  Age: 73 Year
  Sex: Male
  Weight: 86.2 kg

DRUGS (4)
  1. CRESTOR [Suspect]
     Indication: BLOOD CHOLESTEROL
     Route: 048
     Dates: start: 20090101
  2. NAPROSYN [Concomitant]
  3. ATENOLOL [Concomitant]
     Indication: MYOCARDIAL ISCHAEMIA
     Route: 048
  4. TYLENOL-500 [Concomitant]

REACTIONS (7)
  - GAIT DISTURBANCE [None]
  - MUSCULAR WEAKNESS [None]
  - PAIN IN EXTREMITY [None]
  - OSTEOARTHRITIS [None]
  - MOBILITY DECREASED [None]
  - FALL [None]
  - HEPATIC ENZYME ABNORMAL [None]
